FAERS Safety Report 23585488 (Version 1)
Quarter: 2024Q1

REPORT INFORMATION
  Report Type: Spontaneous
  Country: US (occurrence: None)
  Receive Date: 20240229
  Receipt Date: 20240229
  Transmission Date: 20240410
  Serious: Yes (Hospitalization)
  Sender: FDA-Public Use
  Company Number: None

PATIENT
  Age: 68 Year
  Sex: Female
  Weight: 68.85 kg

DRUGS (14)
  1. GAZYVA [Suspect]
     Active Substance: OBINUTUZUMAB
     Indication: Chronic lymphocytic leukaemia
     Route: 042
  2. Venetoclex [Concomitant]
  3. METOPROLOL [Concomitant]
     Active Substance: METOPROLOL
  4. ALLOPURINOL [Concomitant]
     Active Substance: ALLOPURINOL
  5. ROSUVASTATIN [Concomitant]
     Active Substance: ROSUVASTATIN
  6. QULIPTA [Concomitant]
     Active Substance: ATOGEPANT
  7. LORAZEPAM [Concomitant]
     Active Substance: LORAZEPAM
  8. LIBRAX [Concomitant]
     Active Substance: CHLORDIAZEPOXIDE HYDROCHLORIDE\CLIDINIUM BROMIDE
  9. ASPIRIN [Concomitant]
     Active Substance: ASPIRIN
  10. VITAMIN D [Concomitant]
     Active Substance: VITAMIN D NOS
  11. PROBIOTICS NOS [Concomitant]
     Active Substance: PROBIOTICS NOS
  12. RIBOFLAVIN [Concomitant]
     Active Substance: RIBOFLAVIN
  13. CALCIUM CITRATE [Concomitant]
     Active Substance: CALCIUM CITRATE
  14. senior multivitamin [Concomitant]

REACTIONS (6)
  - Infusion related reaction [None]
  - Nausea [None]
  - Vomiting [None]
  - Pyrexia [None]
  - Transaminases increased [None]
  - Pruritus [None]

NARRATIVE: CASE EVENT DATE: 20240112
